FAERS Safety Report 14813770 (Version 6)
Quarter: 2019Q4

REPORT INFORMATION
  Report Type: Spontaneous
  Country: PR (occurrence: PR)
  Receive Date: 20180426
  Receipt Date: 20191231
  Transmission Date: 20200122
  Serious: Yes (Other)
  Sender: FDA-Public Use
  Company Number: PR-PFIZER INC-2017551465

PATIENT
  Age: 71 Year
  Sex: Female
  Weight: 75 kg

DRUGS (4)
  1. XELJANZ XR [Suspect]
     Active Substance: TOFACITINIB CITRATE
     Indication: RHEUMATOID ARTHRITIS
     Dosage: 11 MG, UNK
     Dates: end: 2017
  2. XELJANZ XR [Suspect]
     Active Substance: TOFACITINIB CITRATE
     Dosage: 11 MG, DAILY
     Route: 048
     Dates: end: 201807
  3. XELJANZ XR [Suspect]
     Active Substance: TOFACITINIB CITRATE
     Dosage: 11 MG, 1X/DAY (EVERY DAY IN THE MORNING)
     Dates: end: 20191218
  4. METHOTREXATE. [Concomitant]
     Active Substance: METHOTREXATE
     Dosage: 8 ML, WEEKLY (25MG; 8ML INJECTION EVERY WEEK)

REACTIONS (16)
  - Musculoskeletal pain [Unknown]
  - Headache [Recovering/Resolving]
  - Immunoglobulins decreased [Unknown]
  - Oropharyngeal pain [Recovering/Resolving]
  - Insomnia [Unknown]
  - Blood test abnormal [Unknown]
  - Fall [Unknown]
  - Protein total increased [Unknown]
  - Gait disturbance [Unknown]
  - Malaise [Recovering/Resolving]
  - Immune system disorder [Unknown]
  - Drug ineffective [Unknown]
  - Nasal congestion [Recovering/Resolving]
  - Arthralgia [Unknown]
  - Pain [Unknown]
  - Joint injury [Unknown]
